FAERS Safety Report 9850253 (Version 2)
Quarter: 2014Q1

REPORT INFORMATION
  Report Type: Spontaneous
  Country: US (occurrence: US)
  Receive Date: 20140128
  Receipt Date: 20140212
  Transmission Date: 20141002
  Serious: Yes (Other)
  Sender: FDA-Public Use
  Company Number: US-GLAXOSMITHKLINE-A1057504A

PATIENT
  Age: 58 Year
  Sex: Male

DRUGS (12)
  1. AVODART [Suspect]
     Indication: BENIGN PROSTATIC HYPERPLASIA
     Dosage: .5MG PER DAY
     Route: 048
     Dates: start: 20140109, end: 20140117
  2. KLONOPIN [Concomitant]
  3. CYMBALTA [Concomitant]
  4. AMBIEN [Concomitant]
  5. BUSPIRONE [Concomitant]
  6. FLONASE [Concomitant]
  7. ZYRTEC [Concomitant]
  8. UROXATRAL [Concomitant]
  9. VIIBRYD [Concomitant]
  10. ZOLPIDEM [Concomitant]
  11. MELATONIN [Concomitant]
  12. MULTIVITAMIN [Concomitant]

REACTIONS (4)
  - Suicidal ideation [Recovering/Resolving]
  - Depressed mood [Recovering/Resolving]
  - Crying [Recovering/Resolving]
  - Ill-defined disorder [Recovering/Resolving]
